FAERS Safety Report 22065538 (Version 1)
Quarter: 2023Q1

REPORT INFORMATION
  Report Type: Spontaneous
  Country: US (occurrence: US)
  Receive Date: 20230306
  Receipt Date: 20230306
  Transmission Date: 20230418
  Serious: Yes (Hospitalization, Other)
  Sender: FDA-Public Use
  Company Number: US-PFIZER INC-202300087576

PATIENT
  Age: 71 Year
  Sex: Female
  Weight: 54.43 kg

DRUGS (3)
  1. PAXLOVID [Suspect]
     Active Substance: NIRMATRELVIR\RITONAVIR
     Indication: COVID-19 treatment
     Dosage: 3 DF, IN THE MORNING
     Dates: start: 20221227, end: 20221227
  2. PAXLOVID [Suspect]
     Active Substance: NIRMATRELVIR\RITONAVIR
     Indication: Diabetes mellitus
     Dosage: 3 DF, IN THE EVENING
     Dates: start: 20221227, end: 20221227
  3. PAXLOVID [Suspect]
     Active Substance: NIRMATRELVIR\RITONAVIR
     Indication: Hypertension
     Dosage: 2 DF, 2X/DAY
     Dates: start: 20221228, end: 20221230

REACTIONS (6)
  - Myocardial infarction [Recovered/Resolved with Sequelae]
  - Vascular pseudoaneurysm [Unknown]
  - Myocardial ischaemia [Unknown]
  - Pain in jaw [Recovered/Resolved with Sequelae]
  - Diarrhoea [Unknown]
  - Intentional product misuse [Unknown]

NARRATIVE: CASE EVENT DATE: 20221227
